FAERS Safety Report 16263332 (Version 1)
Quarter: 2019Q2

REPORT INFORMATION
  Report Type: Spontaneous
  Country: GB (occurrence: GB)
  Receive Date: 20190502
  Receipt Date: 20190502
  Transmission Date: 20190711
  Serious: Yes (Hospitalization, Other)
  Sender: FDA-Public Use
  Company Number: GB-PRINSTON PHARMACEUTICAL INC.-2019PRN00449

PATIENT
  Age: 45 Year
  Sex: Female

DRUGS (1)
  1. METFORMIN HYDROCHLORIDE. [Suspect]
     Active Substance: METFORMIN HYDROCHLORIDE
     Dosage: INGESTION OF THREE BOXES (500 MG X 28) OF METFORMIN
     Route: 048

REACTIONS (6)
  - Hyperglycaemia [Recovered/Resolved]
  - Toxicity to various agents [Recovered/Resolved]
  - Hyperkalaemia [Recovered/Resolved]
  - Intentional overdose [Recovered/Resolved]
  - Lactic acidosis [Recovered/Resolved]
  - Agitation [Recovered/Resolved]
